FAERS Safety Report 10072685 (Version 1)
Quarter: 2014Q2

REPORT INFORMATION
  Report Type: Spontaneous
  Country: FR (occurrence: FR)
  Receive Date: 20140411
  Receipt Date: 20140411
  Transmission Date: 20141212
  Serious: Yes (Other)
  Sender: FDA-Public Use
  Company Number: FR-ASTRAZENECA-2014SE23583

PATIENT
  Age: 14022 Day
  Sex: Female

DRUGS (2)
  1. XYLOCAINE WITH EPINEPHRINE [Suspect]
     Indication: EPIDURAL ANAESTHESIA
     Route: 008
     Dates: start: 20140202, end: 20140202
  2. XYLOCAINE WITH EPINEPHRINE [Suspect]
     Indication: EPIDURAL ANAESTHESIA
     Dosage: LIDOCAINE AGUETTANT (GENERIC-NON AZ PRODUCT) 9 ML ONCE/SINGLE ADMINISTRATION
     Route: 008
     Dates: start: 20140202, end: 20140202

REACTIONS (2)
  - Anaesthetic complication neurological [Unknown]
  - Drug ineffective [Recovered/Resolved]
